FAERS Safety Report 23858591 (Version 2)
Quarter: 2024Q2

REPORT INFORMATION
  Report Type: Spontaneous
  Country: AU (occurrence: AU)
  Receive Date: 20240515
  Receipt Date: 20240523
  Transmission Date: 20240716
  Serious: Yes (Hospitalization, Other)
  Sender: FDA-Public Use
  Company Number: AU-SEPTODONT-2024018629

PATIENT
  Age: 22 Year
  Sex: Female
  Weight: 60 kg

DRUGS (3)
  1. ARTICAINE HYDROCHLORIDE\EPINEPHRINE HYDROCHLORIDE [Suspect]
     Active Substance: ARTICAINE HYDROCHLORIDE\EPINEPHRINE HYDROCHLORIDE
     Indication: Dental local anaesthesia
     Dosage: 1 CARTRIDGE 2.2 ML.
     Route: 004
     Dates: start: 20240507
  2. SEPTODONT 30G 0,30x25mm [Concomitant]
  3. CETRIMIDE\LIDOCAINE [Concomitant]
     Active Substance: CETRIMIDE\LIDOCAINE
     Indication: Dental local anaesthesia

REACTIONS (6)
  - Injection site swelling [Recovering/Resolving]
  - Discomfort [Recovering/Resolving]
  - Emphysema [Recovering/Resolving]
  - Pain [Recovering/Resolving]
  - Erythema [Recovering/Resolving]
  - Product quality issue [Unknown]

NARRATIVE: CASE EVENT DATE: 20240508
